FAERS Safety Report 22013970 (Version 1)
Quarter: 2023Q1

REPORT INFORMATION
  Report Type: Report from Study
  Country: US (occurrence: US)
  Receive Date: 20230221
  Receipt Date: 20230221
  Transmission Date: 20230418
  Serious: No
  Sender: FDA-Public Use
  Company Number: US-ACADIA PHARMACEUTICALS INC.-ACA-2023-PIM-000380

PATIENT
  Sex: Male

DRUGS (9)
  1. NUPLAZID [Suspect]
     Active Substance: PIMAVANSERIN TARTRATE
     Indication: Parkinson^s disease psychosis
     Dosage: 34 MILLIGRAM, QD
     Route: 048
  2. SEROQUEL [Suspect]
     Active Substance: QUETIAPINE FUMARATE
  3. ENTACAPONE [Concomitant]
     Active Substance: ENTACAPONE
  4. EZETIMIBE [Concomitant]
     Active Substance: EZETIMIBE
  5. QUETIAPINE [Concomitant]
     Active Substance: QUETIAPINE
  6. ROPINIROLE [Concomitant]
     Active Substance: ROPINIROLE
  7. ROSUVASTATIN [Concomitant]
     Active Substance: ROSUVASTATIN
  8. RYTARY [Concomitant]
     Active Substance: CARBIDOPA\LEVODOPA
  9. REPATHA [Concomitant]
     Active Substance: EVOLOCUMAB
     Dosage: SYRINGE

REACTIONS (1)
  - Somnolence [Not Recovered/Not Resolved]
